FAERS Safety Report 25498802 (Version 1)
Quarter: 2025Q3

REPORT INFORMATION
  Report Type: Spontaneous
  Country: GB (occurrence: GB)
  Receive Date: 20250701
  Receipt Date: 20250701
  Transmission Date: 20251020
  Serious: Yes (Disabling, Other)
  Sender: ACCORD
  Company Number: None

PATIENT
  Weight: 98 kg

DRUGS (1)
  1. SERTRALINE [Suspect]
     Active Substance: SERTRALINE HYDROCHLORIDE
     Indication: Mixed anxiety and depressive disorder
     Dosage: UP TO 175MG/DAY (INCREASED OVER TIME)
     Dates: start: 20230620, end: 20250301

REACTIONS (7)
  - Aspartate aminotransferase increased [Unknown]
  - Hepatocellular injury [Unknown]
  - Metabolic dysfunction-associated liver disease [Unknown]
  - Drug-induced liver injury [Unknown]
  - Liver injury [Unknown]
  - Dopamine dysregulation syndrome [Not Recovered/Not Resolved]
  - Alanine aminotransferase increased [Unknown]
